FAERS Safety Report 14991229 (Version 2)
Quarter: 2018Q4

REPORT INFORMATION
  Report Type: Spontaneous
  Country: CZ (occurrence: CZ)
  Receive Date: 20180608
  Receipt Date: 20181128
  Transmission Date: 20190204
  Serious: Yes (Other)
  Sender: FDA-Public Use
  Company Number: CZ-SA-2018SA142119

PATIENT
  Age: 35 Year
  Sex: Male

DRUGS (2)
  1. AUBAGIO [Suspect]
     Active Substance: TERIFLUNOMIDE
     Indication: CLINICALLY ISOLATED SYNDROME
     Dosage: 14 MG, QD
     Route: 048
     Dates: start: 201602
  2. GLUCOPHAGE [Concomitant]
     Active Substance: METFORMIN HYDROCHLORIDE
     Indication: TYPE 2 DIABETES MELLITUS
     Route: 048

REACTIONS (3)
  - Neurological decompensation [Recovering/Resolving]
  - Gait disturbance [Recovering/Resolving]
  - Multiple sclerosis relapse [Recovering/Resolving]

NARRATIVE: CASE EVENT DATE: 201606
